APPROVED DRUG PRODUCT: ERYTHROMYCIN
Active Ingredient: ERYTHROMYCIN
Strength: 100%
Dosage Form/Route: POWDER;FOR RX COMPOUNDING
Application: N050610 | Product #001
Applicant: PADDOCK LABORATORIES LLC
Approved: Nov 7, 1986 | RLD: No | RS: No | Type: DISCN